FAERS Safety Report 18475106 (Version 1)
Quarter: 2020Q4

REPORT INFORMATION
  Report Type: Spontaneous
  Country: FR (occurrence: FR)
  Receive Date: 20201106
  Receipt Date: 20201106
  Transmission Date: 20210114
  Serious: Yes (Life-Threatening, Hospitalization)
  Sender: FDA-Public Use
  Company Number: FR-BAUSCH-BL-2020-031820

PATIENT
  Age: 67 Year
  Sex: Male
  Weight: 134 kg

DRUGS (2)
  1. DIGOXINE NATIVELLE [Suspect]
     Active Substance: DIGOXIN
     Indication: SUICIDE ATTEMPT
     Route: 048
     Dates: start: 20201016, end: 20201016
  2. METFORMINE [Suspect]
     Active Substance: METFORMIN HYDROCHLORIDE
     Indication: SUICIDE ATTEMPT
     Route: 048
     Dates: start: 20201016, end: 20201016

REACTIONS (5)
  - Tachycardia [Recovered/Resolved]
  - Hyperkalaemia [Recovered/Resolved]
  - Acute respiratory failure [Recovered/Resolved]
  - Cardioactive drug level increased [Recovered/Resolved]
  - Respiratory acidosis [Recovering/Resolving]

NARRATIVE: CASE EVENT DATE: 20201016
